FAERS Safety Report 24809090 (Version 4)
Quarter: 2025Q3

REPORT INFORMATION
  Report Type: Spontaneous
  Country: CA (occurrence: None)
  Receive Date: 20250106
  Receipt Date: 20250707
  Transmission Date: 20251020
  Serious: Yes (Hospitalization, Other)
  Sender: ORION
  Company Number: CA-PFIZER INC-202500001002

PATIENT
  Age: 76 Year
  Sex: Female

DRUGS (2)
  1. METHOTREXATE [Suspect]
     Active Substance: METHOTREXATE
     Indication: Product used for unknown indication
  2. ERELZI [Suspect]
     Active Substance: ETANERCEPT-SZZS
     Indication: Rheumatoid arthritis

REACTIONS (19)
  - Myocardial infarction [Not Recovered/Not Resolved]
  - COVID-19 [Not Recovered/Not Resolved]
  - Decreased appetite [Not Recovered/Not Resolved]
  - Diarrhoea [Not Recovered/Not Resolved]
  - Dysgeusia [Not Recovered/Not Resolved]
  - Headache [Not Recovered/Not Resolved]
  - Illness [Not Recovered/Not Resolved]
  - Influenza [Not Recovered/Not Resolved]
  - Nasopharyngitis [Not Recovered/Not Resolved]
  - Oropharyngeal pain [Not Recovered/Not Resolved]
  - Pyrexia [Not Recovered/Not Resolved]
  - Sinusitis [Not Recovered/Not Resolved]
  - Weight decreased [Not Recovered/Not Resolved]
  - Cough [Not Recovered/Not Resolved]
  - Pain in extremity [Not Recovered/Not Resolved]
  - Viral infection [Not Recovered/Not Resolved]
  - Loss of personal independence in daily activities [Not Recovered/Not Resolved]
  - Mucosal discolouration [Not Recovered/Not Resolved]
  - Product dose omission issue [Unknown]
